FAERS Safety Report 9995630 (Version 3)
Quarter: 2014Q2

REPORT INFORMATION
  Report Type: Report from Study
  Country: US (occurrence: US)
  Receive Date: 20140311
  Receipt Date: 20140618
  Transmission Date: 20141212
  Serious: Yes (Disabling, Other)
  Sender: FDA-Public Use
  Company Number: PHEH2014US003061

PATIENT
  Age: 45 Year
  Sex: Female
  Weight: 94.3 kg

DRUGS (9)
  1. TASIGNA [Suspect]
     Indication: CHRONIC MYELOID LEUKAEMIA
     Dosage: 2 DF, BID
     Route: 048
  2. TASIGNA [Suspect]
     Dosage: 300 MG, BID
     Route: 048
     Dates: start: 20130806
  3. TASIGNA [Suspect]
     Dosage: 300 MG, UNK
     Route: 048
     Dates: start: 201311
  4. DOXYCYCLINE [Concomitant]
  5. ACU-DICLOFENAC [Concomitant]
  6. FENTANYL [Concomitant]
  7. SINGULAIR [Concomitant]
     Dosage: UNK
  8. ALLEGRA [Concomitant]
  9. WELLBUTRIN [Concomitant]

REACTIONS (9)
  - Dermal cyst [Recovering/Resolving]
  - Memory impairment [Not Recovered/Not Resolved]
  - Fatigue [Recovering/Resolving]
  - Myalgia [Recovering/Resolving]
  - Headache [Recovering/Resolving]
  - Pain [Unknown]
  - Urticaria [Unknown]
  - Rash [Recovering/Resolving]
  - Acne [Recovering/Resolving]
